FAERS Safety Report 8385539-9 (Version None)
Quarter: 2012Q2

REPORT INFORMATION
  Report Type: 
  Country: None (occurrence: None)
  Receive Date: 20120525
  Receipt Date: 20120514
  Transmission Date: 20120825
  Serious: Yes (Other)
  Sender: FDA-Public Use
  Company Number: GB-AMGEN-GBRSP2012026912

PATIENT
  Age: 48 Year
  Sex: Male

DRUGS (4)
  1. ACETAMINOPHEN [Concomitant]
     Indication: ANKYLOSING SPONDYLITIS
     Dosage: 6 X 500MG
     Route: 048
     Dates: start: 20050101
  2. DEPO-MEDROL [Concomitant]
     Indication: ANKYLOSING SPONDYLITIS
     Dosage: 120MG INTERMITTENTLY
     Route: 030
  3. ENBREL [Suspect]
     Indication: ANKYLOSING SPONDYLITIS
     Dosage: 25 MG, 2X/WEEK
     Route: 058
     Dates: start: 20080101
  4. DICLOFENAC SODIUM [Concomitant]
     Indication: ANKYLOSING SPONDYLITIS
     Dosage: 75 MG, 2X/DAY
     Route: 048
     Dates: start: 20080101

REACTIONS (1)
  - DIABETES MELLITUS [None]
